FAERS Safety Report 18184707 (Version 1)
Quarter: 2020Q3

REPORT INFORMATION
  Report Type: Other
  Country: US (occurrence: US)
  Receive Date: 20200824
  Receipt Date: 20200824
  Transmission Date: 20201103
  Serious: Yes (Death, Life-Threatening)
  Sender: FDA-Public Use
  Company Number: US-ROCHE-2628698

PATIENT
  Age: 49 Year
  Sex: Male
  Weight: 100 kg

DRUGS (1)
  1. ACTEMRA [Suspect]
     Active Substance: TOCILIZUMAB
     Indication: SARS-COV-2 TEST POSITIVE
     Dosage: ONCE
     Route: 040
     Dates: start: 20200426, end: 20200426

REACTIONS (4)
  - Intentional product use issue [Unknown]
  - Klebsiella bacteraemia [Fatal]
  - Off label use [Unknown]
  - Citrobacter bacteraemia [Recovered/Resolved]

NARRATIVE: CASE EVENT DATE: 20200426
